FAERS Safety Report 14568034 (Version 4)
Quarter: 2018Q2

REPORT INFORMATION
  Report Type: Spontaneous
  Country: CZ (occurrence: CZ)
  Receive Date: 20180223
  Receipt Date: 20180521
  Transmission Date: 20180711
  Serious: Yes (Death, Hospitalization, Other)
  Sender: FDA-Public Use
  Company Number: CZ-B.I. PHARMACEUTICALS,INC./RIDGEFIELD-2018-BI-009143

PATIENT
  Age: 54 Year
  Sex: Male

DRUGS (1)
  1. GILOTRIF [Suspect]
     Active Substance: AFATINIB
     Indication: NON-SMALL CELL LUNG CANCER
     Route: 048
     Dates: start: 20140627, end: 201601

REACTIONS (3)
  - Cerebral haemorrhage [Fatal]
  - Malignant neoplasm progression [Unknown]
  - Epilepsy [Unknown]

NARRATIVE: CASE EVENT DATE: 20151212
